FAERS Safety Report 11335695 (Version 1)
Quarter: 2015Q3

REPORT INFORMATION
  Report Type: Spontaneous
  Country: BR (occurrence: BR)
  Receive Date: 20150804
  Receipt Date: 20150804
  Transmission Date: 20151125
  Serious: Yes (Hospitalization)
  Sender: FDA-Public Use
  Company Number: BR-PFIZER INC-2015254832

PATIENT
  Age: 29 Year
  Sex: Female

DRUGS (2)
  1. PRISTIQ EXTENDED RELEASE [Suspect]
     Active Substance: DESVENLAFAXINE SUCCINATE
     Dosage: 50 MG, DAILY
     Dates: start: 20150609, end: 2015
  2. PRISTIQ EXTENDED RELEASE [Suspect]
     Active Substance: DESVENLAFAXINE SUCCINATE
     Dosage: 100 MG, DAILY
     Dates: start: 2015, end: 20150716

REACTIONS (11)
  - Urine odour abnormal [Unknown]
  - Headache [Recovering/Resolving]
  - Musculoskeletal stiffness [Recovering/Resolving]
  - Myalgia [Unknown]
  - Back pain [Recovering/Resolving]
  - Abdominal discomfort [Recovering/Resolving]
  - Burn oesophageal [Recovering/Resolving]
  - Oral mucosal blistering [Recovering/Resolving]
  - Dyspepsia [Unknown]
  - Musculoskeletal pain [Recovering/Resolving]
  - Pain [Recovering/Resolving]

NARRATIVE: CASE EVENT DATE: 2015
